FAERS Safety Report 6160065-6 (Version None)
Quarter: 2009Q2

REPORT INFORMATION
  Report Type: 
  Country: None (occurrence: None)
  Receive Date: 20090415
  Receipt Date: 20090403
  Transmission Date: 20091009
  Serious: Yes (Other)
  Sender: FDA-Public Use
  Company Number: ACO_00526_2009

PATIENT
  Sex: Female

DRUGS (1)
  1. SIRDALUD /00740702/ (SIRDALUD - TIZANIDINE HYDROCHLORIDE) (NOT SPECIFI [Suspect]
     Indication: PAIN
     Dosage: (DF ORAL)
     Route: 048

REACTIONS (2)
  - OLIGURIA [None]
  - PRURITUS [None]
